FAERS Safety Report 14847900 (Version 2)
Quarter: 2018Q2

REPORT INFORMATION
  Report Type: Spontaneous
  Country: IT (occurrence: IT)
  Receive Date: 20180504
  Receipt Date: 20180511
  Transmission Date: 20180711
  Serious: Yes (Other)
  Sender: FDA-Public Use
  Company Number: IT-MYLANLABS-2018M1020056

PATIENT
  Sex: Male
  Weight: 3 kg

DRUGS (3)
  1. LAMOTRIGINE. [Suspect]
     Active Substance: LAMOTRIGINE
     Dosage: 200 MG, QD
     Route: 064
  2. LAMOTRIGINE. [Suspect]
     Active Substance: LAMOTRIGINE
     Indication: EPILEPSY
     Dosage: 120 MG, QD
     Route: 063
  3. LAMOTRIGINE. [Suspect]
     Active Substance: LAMOTRIGINE
     Dosage: 150 MG, UNK
     Route: 063

REACTIONS (4)
  - Exposure via breast milk [Recovered/Resolved]
  - Normochromic normocytic anaemia [Recovered/Resolved]
  - Neutropenia [Recovered/Resolved]
  - Foetal exposure during pregnancy [Recovered/Resolved]
